FAERS Safety Report 8419155-7 (Version None)
Quarter: 2012Q2

REPORT INFORMATION
  Report Type: 
  Country: None (occurrence: None)
  Receive Date: 20120601
  Receipt Date: 20120518
  Transmission Date: 20120825
  Serious: Yes (Hospitalization, Other)
  Sender: FDA-Public Use
  Company Number: TPA2012A01551

PATIENT
  Age: 62 Year
  Sex: Male
  Weight: 149.2334 kg

DRUGS (18)
  1. ASA (ACETYLSALICYLIC ACID) (TABLETS) [Concomitant]
  2. PROCUR (CYPROTERONE ACETATE) [Concomitant]
  3. LOVAZA (NEBIVOLOL HYDROCHLORIDE) [Concomitant]
  4. CLOBETASOL (CLOBETASOL) [Concomitant]
  5. VITAMIN TAB [Concomitant]
  6. PRAVASTATIN [Concomitant]
  7. COREG [Suspect]
     Indication: CARDIAC FAILURE CONGESTIVE
     Dosage: 6 MG, 1 IN 1 D, ORAL, 3.125 MG, 1 IN 1 D, PER ORAL
     Route: 048
     Dates: start: 20070101
  8. COREG [Suspect]
     Indication: CARDIAC FAILURE CONGESTIVE
     Dosage: 6 MG, 1 IN 1 D, ORAL, 3.125 MG, 1 IN 1 D, PER ORAL
     Route: 048
     Dates: start: 20120101
  9. NORCO (PARACETAMOL, HYDROCODONE BITARTRATE) (TABLETS) [Concomitant]
  10. LOVAZA (OTHER LIPID MODIFYING AGENTS) (CAPSULES) [Concomitant]
  11. DIPROLINE (DIPROPHYLLINE) [Concomitant]
  12. ATROVENT [Concomitant]
  13. LISINOPRIL [Concomitant]
  14. NIACIN (NICOTINIC ACID) (TABLETS) [Concomitant]
  15. ACTOS [Suspect]
     Indication: DIABETES MELLITUS
     Dosage: 45 MG, 1 IN 1 D, PER ORAL, 30 MG, 1 IN 1 D, PER ORAL
     Route: 048
     Dates: start: 20080101, end: 20090101
  16. ACTOS [Suspect]
     Indication: DIABETES MELLITUS
     Dosage: 45 MG, 1 IN 1 D, PER ORAL, 30 MG, 1 IN 1 D, PER ORAL
     Route: 048
     Dates: start: 20010101, end: 20070101
  17. FLUNARCA (FLUNARIZINE DIHYDROCHLORIDE) [Concomitant]
  18. DEMADEX (TORASEMIDE) (TABLETS) [Concomitant]

REACTIONS (6)
  - MYOCARDIAL INFARCTION [None]
  - FLUID RETENTION [None]
  - CARDIAC FAILURE CONGESTIVE [None]
  - PAIN IN EXTREMITY [None]
  - KNEE ARTHROPLASTY [None]
  - WEIGHT INCREASED [None]
